FAERS Safety Report 13287516 (Version 2)
Quarter: 2017Q1

REPORT INFORMATION
  Report Type: Spontaneous
  Country: US (occurrence: US)
  Receive Date: 20170302
  Receipt Date: 20170303
  Transmission Date: 20170428
  Serious: Yes (Other)
  Sender: FDA-Public Use
  Company Number: US-TEVA-737703ACC

PATIENT
  Age: 53 Year
  Sex: Female
  Weight: 74.46 kg

DRUGS (1)
  1. PARAGARD T 380A [Suspect]
     Active Substance: COPPER
     Indication: CONTRACEPTION
     Dates: start: 200509

REACTIONS (5)
  - Postmenopausal haemorrhage [Unknown]
  - Device breakage [Unknown]
  - Uterine scar [Unknown]
  - Uterine leiomyoma [Unknown]
  - Embedded device [Unknown]

NARRATIVE: CASE EVENT DATE: 201601
